FAERS Safety Report 24550779 (Version 1)
Quarter: 2024Q4

REPORT INFORMATION
  Report Type: Spontaneous
  Country: JP (occurrence: JP)
  Receive Date: 20241025
  Receipt Date: 20241025
  Transmission Date: 20250115
  Serious: No
  Sender: JAZZ
  Company Number: JP-JAZZ PHARMACEUTICALS-2024-JP-009460

PATIENT
  Sex: Male

DRUGS (3)
  1. DEFITELIO [Suspect]
     Active Substance: DEFIBROTIDE SODIUM
     Indication: Venoocclusive liver disease
     Dosage: 1600 MILLIGRAM//24 HOURS
     Route: 042
     Dates: start: 20240521, end: 2024
  2. DEFITELIO [Suspect]
     Active Substance: DEFIBROTIDE SODIUM
     Dosage: 1600 MILLIGRAM /24 HOURS
     Route: 042
     Dates: start: 2024, end: 2024
  3. DEFITELIO [Suspect]
     Active Substance: DEFIBROTIDE SODIUM
     Dosage: 1600 MILLIGRAM /24 HOURS
     Route: 042
     Dates: start: 2024, end: 20240619

REACTIONS (3)
  - Haemorrhage [Not Recovered/Not Resolved]
  - Gastric haemorrhage [Recovered/Resolved]
  - Haemorrhage [Recovered/Resolved]

NARRATIVE: CASE EVENT DATE: 20240101
